FAERS Safety Report 4331417-1 (Version None)
Quarter: 2004Q1

REPORT INFORMATION
  Report Type: 
  Country: None (occurrence: None)
  Receive Date: 20040331
  Receipt Date: 20040319
  Transmission Date: 20041129
  Serious: Yes (Death)
  Sender: FDA-Public Use
  Company Number: JP-JNJFOC-20040304432

PATIENT
  Age: 53 Year
  Sex: Male

DRUGS (15)
  1. FENTANYL [Suspect]
     Indication: CANCER PAIN
     Dosage: SEE IMAGE
     Route: 062
     Dates: start: 20040202, end: 20040205
  2. FENTANYL [Suspect]
     Indication: CANCER PAIN
     Dosage: SEE IMAGE
     Route: 062
     Dates: start: 20040205, end: 20040220
  3. FENTANYL [Suspect]
     Indication: CANCER PAIN
     Dosage: SEE IMAGE
     Route: 062
     Dates: start: 20040220, end: 20040223
  4. FENTANYL [Suspect]
     Indication: CANCER PAIN
     Dosage: SEE IMAGE
     Route: 062
     Dates: start: 20040223, end: 20040305
  5. PROTEIN, AMINO ACID AND PREPARATIONS (ALL OTHER THERAPEUTIC PRODUCTS) [Concomitant]
  6. FAMOTIDINE (FAMOTIDINE)UNSPECIFIED [Concomitant]
  7. MIXED VITAMIN PREPARATIONS (VITAMIN PREPARATION COMPOUND) UNSPECIFIED [Concomitant]
  8. MINERAL PREPARATIONS (MINERAL NOS ) UNSPECIFIED [Concomitant]
  9. 10% SODIUM CHLORIDE (SODIUM CHLORIDE) UNSPECIFIED [Concomitant]
  10. BETAMETHASONE SODIUM PHOSPHATE (BETAMETHASONE SODIUM PHOSPHATE) UNSPEC [Concomitant]
  11. IRSOGLADINE MALEATE (IRSOGLADINE MALEATE) UNSPECIFIED [Concomitant]
  12. ALLOPURINOL (ALLOPURINOL ) UNSPECIFIED [Concomitant]
  13. DICLOFENAC SODIUM (DICLOFENAC SODIUM) UNSPECIFIED [Concomitant]
  14. MORPHINE HYDROCHLORIDE  (MORPHIEN HYDROCHLORIDE) [Concomitant]
  15. BUTYLSCOPOLAMINE BROMIDE (HYOSCINE) UNSPECIFIED [Concomitant]

REACTIONS (1)
  - DEATH [None]
